FAERS Safety Report 19033750 (Version 1)
Quarter: 2021Q1

REPORT INFORMATION
  Report Type: Spontaneous
  Country: US (occurrence: US)
  Receive Date: 20210319
  Receipt Date: 20210319
  Transmission Date: 20210420
  Serious: Yes (Other)
  Sender: FDA-Public Use
  Company Number: US-ABBVIE-21K-163-3823626-00

PATIENT

DRUGS (2)
  1. IMBRUVICA [Suspect]
     Active Substance: IBRUTINIB
     Indication: CHRONIC LYMPHOCYTIC LEUKAEMIA
     Dosage: 6?28?DAY CYCLES
     Route: 048
  2. IANALUMAB [Suspect]
     Active Substance: IANALUMAB
     Indication: CHRONIC LYMPHOCYTIC LEUKAEMIA
     Dosage: 0.3, 1, 3, OR 9 MG/KG EVERY 2 WEEKS
     Route: 042

REACTIONS (8)
  - Hypertension [Unknown]
  - White blood cell count decreased [Unknown]
  - Hypokalaemia [Unknown]
  - Hypophosphataemia [Unknown]
  - Hypomagnesaemia [Unknown]
  - Leukocytosis [Unknown]
  - Lymphocyte count increased [Unknown]
  - Neutrophil count decreased [Unknown]
